FAERS Safety Report 17685464 (Version 3)
Quarter: 2020Q2

REPORT INFORMATION
  Report Type: Spontaneous
  Country: US (occurrence: US)
  Receive Date: 20200420
  Receipt Date: 20200526
  Transmission Date: 20200714
  Serious: No
  Sender: FDA-Public Use
  Company Number: US-SA-2020SA101631

PATIENT
  Age: 14 Year
  Sex: Male

DRUGS (1)
  1. DUPIXENT [Suspect]
     Active Substance: DUPILUMAB
     Indication: DERMATITIS ATOPIC
     Dosage: 300 MG, QOW
     Route: 058
     Dates: start: 20200310

REACTIONS (12)
  - Pruritus [Unknown]
  - Periorbital inflammation [Unknown]
  - Abdominal pain upper [Unknown]
  - Headache [Unknown]
  - Scab [Not Recovered/Not Resolved]
  - Blepharitis [Unknown]
  - Incorrect dose administered [Unknown]
  - Therapeutic response decreased [Recovering/Resolving]
  - Skin discolouration [Recovering/Resolving]
  - Dry skin [Recovering/Resolving]
  - Dermatitis [Unknown]
  - Erythema [Recovering/Resolving]

NARRATIVE: CASE EVENT DATE: 2020
